FAERS Safety Report 18376831 (Version 5)
Quarter: 2020Q4

REPORT INFORMATION
  Report Type: Spontaneous
  Country: US (occurrence: US)
  Receive Date: 20201013
  Receipt Date: 20201111
  Transmission Date: 20210114
  Serious: Yes (Other)
  Sender: FDA-Public Use
  Company Number: US-SA-2020SA277217

PATIENT

DRUGS (3)
  1. LANTUS [Suspect]
     Active Substance: INSULIN GLARGINE
     Indication: TYPE 2 DIABETES MELLITUS
     Dosage: 48 IU, QD
     Route: 065
     Dates: start: 2010
  2. OZEMPIC [Concomitant]
     Active Substance: SEMAGLUTIDE
     Dosage: UNKNOWN
     Route: 065
  3. NOVOLOG [Concomitant]
     Active Substance: INSULIN ASPART
     Dosage: UNKNOWN
     Route: 065

REACTIONS (4)
  - Cardiac failure congestive [Unknown]
  - Product dose omission issue [Unknown]
  - Blood glucose increased [Unknown]
  - Device breakage [Unknown]
